FAERS Safety Report 18058334 (Version 1)
Quarter: 2020Q3

REPORT INFORMATION
  Report Type: Spontaneous
  Country: US (occurrence: US)
  Receive Date: 20200723
  Receipt Date: 20200723
  Transmission Date: 20201103
  Serious: No
  Sender: FDA-Public Use
  Company Number: US-GLAXOSMITHKLINE-US2020136695

PATIENT
  Sex: Female

DRUGS (2)
  1. NUCALA [Suspect]
     Active Substance: MEPOLIZUMAB
     Indication: ASTHMA
     Dosage: UNK
     Route: 058
     Dates: start: 202001
  2. PREDNISONE. [Suspect]
     Active Substance: PREDNISONE
     Indication: NASAL POLYPS
     Dosage: UNK
     Route: 065

REACTIONS (2)
  - Nasal polyps [Not Recovered/Not Resolved]
  - Bone disorder [Unknown]

NARRATIVE: CASE EVENT DATE: 2020
